FAERS Safety Report 9571184 (Version 1)
Quarter: 2013Q4

REPORT INFORMATION
  Report Type: Report from Study
  Country: US (occurrence: US)
  Receive Date: 20131001
  Receipt Date: 20131001
  Transmission Date: 20140711
  Serious: Yes (Death)
  Sender: FDA-Public Use
  Company Number: PHEH2013US020398

PATIENT
  Sex: Male

DRUGS (15)
  1. GLEEVEC [Suspect]
     Indication: CHRONIC MYELOID LEUKAEMIA
     Dosage: 100 MG, DAILY
     Route: 048
     Dates: start: 20120912
  2. IMODIUM [Concomitant]
     Dosage: UNK UKN, UNK
  3. NORCO [Concomitant]
     Dosage: UNK UKN, UNK
  4. ZOFRAN [Concomitant]
     Dosage: UNK UKN, UNK
  5. REQUIP [Concomitant]
     Dosage: UNK UKN, UNK
  6. MIRTAZAPINE [Concomitant]
     Dosage: UNK UKN, UNK
  7. LOVASTATIN [Concomitant]
     Dosage: UNK UKN, UNK
  8. FENTANYL [Concomitant]
     Dosage: UNK UKN, UNK
  9. MUCINEX [Concomitant]
     Dosage: UNK UKN, UNK
  10. SPIRONOLACTONE [Concomitant]
     Dosage: UNK UKN, UNK
  11. SINGULAIR [Concomitant]
     Dosage: UNK UKN, UNK
  12. LISINOPRIL [Concomitant]
     Dosage: UNK UKN, UNK
  13. IMDUR [Concomitant]
     Dosage: UNK UKN, UNK
  14. CIPRO ^MILES^ [Concomitant]
     Dosage: UNK UKN, UNK
  15. LASIX [Concomitant]
     Dosage: UNK UKN, UNK

REACTIONS (1)
  - Death [Fatal]
